FAERS Safety Report 6580465-X (Version None)
Quarter: 2010Q1

REPORT INFORMATION
  Report Type: 
  Country: None (occurrence: None)
  Receive Date: 20100212
  Receipt Date: 20100211
  Transmission Date: 20100710
  Serious: Yes (Death, Hospitalization, Other)
  Sender: FDA-Public Use
  Company Number: PHEH2008US01756

PATIENT
  Sex: Female

DRUGS (41)
  1. ELIDEL [Suspect]
     Indication: ECZEMA
     Dosage: UNK, UNK
     Route: 061
     Dates: start: 20021206, end: 20051212
  2. LOTRIMIN [Concomitant]
     Route: 061
  3. ZOVIRAX [Concomitant]
     Dosage: 500 MG, UNK
  4. SOLU-MEDROL [Concomitant]
     Dosage: UNK
  5. SANDIMMUNE [Concomitant]
     Dosage: UNK
  6. TORADOL [Concomitant]
     Dosage: UNK
  7. MAXIPIME [Concomitant]
     Dosage: 1 G, UNK
  8. VANCOMYCIN [Concomitant]
     Dosage: 500 MG, UNK
  9. LEVOPHED [Concomitant]
     Dosage: UNK
  10. DOPAMINE HCL [Concomitant]
     Dosage: UNK
  11. PAPAVERINE [Concomitant]
     Dosage: UNK
  12. KETALAR [Concomitant]
     Dosage: UNK
  13. LASIX [Concomitant]
     Dosage: 20 MG, UNK
  14. BUMEX [Concomitant]
     Dosage: UNK
  15. MANNITOL [Concomitant]
     Dosage: UNK
  16. DIURIL [Concomitant]
     Dosage: 500 MG, UNK
  17. DEXTROSE 50% [Concomitant]
     Dosage: 25%
  18. DEXTROSE 50% [Concomitant]
     Dosage: 50%
  19. PULMOZYME [Concomitant]
     Dosage: UNK
  20. NORCURON [Concomitant]
     Dosage: UNK
  21. NIMBEX [Concomitant]
     Dosage: UNK
  22. PITRESSIN [Concomitant]
     Dosage: UNK
  23. CARDENE [Concomitant]
     Dosage: UNK
  24. XOPENEX [Concomitant]
     Dosage: UNK
  25. CELLCEPT [Concomitant]
     Dosage: UNK
  26. RIFADIN [Concomitant]
     Dosage: UNK
  27. AMPICILLIN [Concomitant]
     Dosage: UNK
  28. GARAMYCIN [Concomitant]
     Dosage: UNK
  29. TIMENTIN [Concomitant]
  30. AMICAR [Concomitant]
     Dosage: UNK
  31. THYMOGLOBULINE                          /NET/ [Concomitant]
     Dosage: 25 MG, UNK
  32. VFEND [Concomitant]
     Dosage: UNK
  33. NITRIC OXIDE [Concomitant]
     Dosage: UNK
  34. LEVAQUIN [Concomitant]
     Dosage: UNK
  35. GENTAMYCIN-MP [Concomitant]
     Dosage: UNK
  36. NEUPOGEN [Concomitant]
     Dosage: 300 MCG
  37. PRIMACOR [Concomitant]
     Dosage: UNK
  38. ACTIVASE [Concomitant]
     Dosage: UNK
  39. ZOFRAN [Concomitant]
     Dosage: UNK
  40. MERREM [Concomitant]
  41. CYTOSAR-U [Concomitant]
     Dosage: UNK

REACTIONS (30)
  - ACUTE LEUKAEMIA [None]
  - ACUTE MYELOID LEUKAEMIA [None]
  - AGRANULOCYTOSIS [None]
  - ALOPECIA [None]
  - ANAL FISSURE [None]
  - ASPIRATION BONE MARROW [None]
  - ATELECTASIS [None]
  - BLOOD PRESSURE DECREASED [None]
  - CENTRAL VENOUS CATHETERISATION [None]
  - CHRONIC SINUSITIS [None]
  - CONTUSION [None]
  - DIALYSIS [None]
  - HYPERGLYCAEMIA [None]
  - MULTI-ORGAN FAILURE [None]
  - NEUTROPENIA [None]
  - PALLOR [None]
  - PLEURAL EFFUSION [None]
  - PNEUMONIA [None]
  - PULMONARY HAEMORRHAGE [None]
  - PULMONARY OEDEMA [None]
  - PYREXIA [None]
  - RENAL FAILURE ACUTE [None]
  - RESPIRATORY FAILURE [None]
  - SEPTIC SHOCK [None]
  - STREPTOCOCCAL SEPSIS [None]
  - SUPRAVENTRICULAR EXTRASYSTOLES [None]
  - SWELLING [None]
  - TINEA PEDIS [None]
  - VENTRICULAR EXTRASYSTOLES [None]
  - WEIGHT DECREASED [None]
